FAERS Safety Report 8836077 (Version 1)
Quarter: 2012Q4

REPORT INFORMATION
  Report Type: 
  Country: BR (occurrence: BR)
  Receive Date: 20121011
  Receipt Date: 20121011
  Transmission Date: 20130627
  Serious: Yes (Other)
  Sender: FDA-Public Use
  Company Number: PHHY2012BR090045

PATIENT
  Age: 76 Year
  Sex: Female

DRUGS (2)
  1. ACLASTA [Suspect]
     Indication: OSTEOPOROSIS
     Dosage: 1 infusion
     Route: 042
  2. ACLASTA [Suspect]
     Dosage: 1 infusion
     Route: 042

REACTIONS (1)
  - Osteonecrosis of jaw [Unknown]
